FAERS Safety Report 7690512-X (Version None)
Quarter: 2011Q3

REPORT INFORMATION
  Report Type: 
  Country: None (occurrence: None)
  Receive Date: 20110812
  Receipt Date: 20110708
  Transmission Date: 20111222
  Serious: Yes (Other)
  Sender: FDA-Public Use
  Company Number: 976141

PATIENT
  Age: 64 Year
  Sex: Female

DRUGS (6)
  1. DEXAMETHASONE [Concomitant]
  2. FLUOROURACIL [Suspect]
     Indication: NEOPLASM MALIGNANT
     Dosage: EVERY CYCLE FOR 11 CYCLES
     Dates: start: 20110509
  3. DIPHENHYDRAMINE HCL INJ. [Concomitant]
  4. LEUCOVORIN CALCIUM [Suspect]
     Indication: NEOPLASM MALIGNANT
     Dosage: EVERY CYCLE FOR 11 CYCLES,
     Dates: start: 20110509
  5. ELOXATIN [Suspect]
     Indication: NEOPLASM MALIGNANT
     Dosage: ONE DAY EVERY CYCLE FOR 11 CYCLES, INTRAVENOUS DRIP
     Route: 041
     Dates: start: 20110509
  6. HYDROCORTISONE SODIUM SUCCINATE FOR INJECTION [Concomitant]

REACTIONS (3)
  - ABDOMINAL PAIN [None]
  - HYPERSENSITIVITY [None]
  - RASH [None]
